FAERS Safety Report 8258609-3 (Version None)
Quarter: 2012Q2

REPORT INFORMATION
  Report Type: 
  Country: None (occurrence: None)
  Receive Date: 20120404
  Receipt Date: 20120323
  Transmission Date: 20120825
  Serious: Yes (Other)
  Sender: FDA-Public Use
  Company Number: BR-BRISTOL-MYERS SQUIBB COMPANY-16480139

PATIENT
  Age: 75 Year
  Sex: Female
  Weight: 73 kg

DRUGS (6)
  1. IRBESARTAN + HYDROCHLOROTHIAZIDE [Suspect]
     Indication: HYPERTENSION
     Dosage: 1 DF:1/2 TAB APROZIDE 300MG TABS
     Route: 048
     Dates: start: 20060101
  2. ATENOLOL AND CHLORTHALIDONE [Suspect]
  3. ATENOLOL [Suspect]
  4. BUFFERIN [Suspect]
  5. VERAPAMIL [Suspect]
  6. ATORVASTATIN [Suspect]

REACTIONS (2)
  - DRUG HYPERSENSITIVITY [None]
  - CORONARY ARTERY OCCLUSION [None]
